FAERS Safety Report 17262166 (Version 2)
Quarter: 2020Q1

REPORT INFORMATION
  Report Type: Report from Study
  Country: MX (occurrence: MX)
  Receive Date: 20200113
  Receipt Date: 20200120
  Transmission Date: 20200409
  Serious: Yes (Hospitalization, Other)
  Sender: FDA-Public Use
  Company Number: MX-BAYER-2019-084673

PATIENT
  Sex: Female

DRUGS (20)
  1. RITUXIMAB. [Suspect]
     Active Substance: RITUXIMAB
     Indication: NON-HODGKIN^S LYMPHOMA RECURRENT
     Dosage: UNK
     Dates: end: 201905
  2. OMEPRAZOLE. [Concomitant]
     Active Substance: OMEPRAZOLE
     Indication: CHRONIC GASTRITIS
     Dosage: 20 MG, QD
     Route: 048
     Dates: start: 201711, end: 20190422
  3. ONDASETRON [ONDANSETRON] [Concomitant]
     Indication: CHRONIC GASTRITIS
     Dosage: 8 MG, ONCE
     Route: 042
     Dates: start: 20190510, end: 20190510
  4. PARACETAMOL [Concomitant]
     Active Substance: ACETAMINOPHEN
     Indication: NEUTROPENIA
     Dosage: 1 G, ONCE
     Route: 042
     Dates: start: 20190509, end: 20190509
  5. ENALAPRIL [Concomitant]
     Active Substance: ENALAPRIL
     Indication: HYPERTENSION
     Dosage: 10 MG, BID
     Route: 048
     Dates: start: 20190509, end: 20190511
  6. OMEPRAZOLE. [Concomitant]
     Active Substance: OMEPRAZOLE
     Indication: CHRONIC GASTRITIS
     Dosage: 20 MG, BID
     Route: 048
     Dates: start: 20190425
  7. RANITIDINE. [Concomitant]
     Active Substance: RANITIDINE
     Indication: RASH
  8. DEXAMETHASONE. [Concomitant]
     Active Substance: DEXAMETHASONE
     Indication: RASH
     Dosage: 4 MG
  9. ALBUMIN [Concomitant]
     Active Substance: ALBUMIN HUMAN
     Indication: BLOOD ALBUMIN DECREASED
     Route: 042
  10. GLUTAMINE [Concomitant]
     Active Substance: GLUTAMINE
     Route: 048
  11. BENDAMUSTINE [Suspect]
     Active Substance: BENDAMUSTINE
     Indication: NON-HODGKIN^S LYMPHOMA RECURRENT
     Dosage: UNK
     Dates: end: 201905
  12. PARACETAMOL [Concomitant]
     Active Substance: ACETAMINOPHEN
     Indication: PROPHYLAXIS
     Dosage: 1 G
     Route: 048
     Dates: start: 20190719, end: 20190723
  13. PARACETAMOL [Concomitant]
     Active Substance: ACETAMINOPHEN
     Indication: PREMEDICATION
     Dosage: 1 G, BID
     Route: 042
     Dates: start: 20190809, end: 20190811
  14. FILGRASTIM [Concomitant]
     Active Substance: FILGRASTIM
     Indication: NEUTROPENIA
     Dosage: 300 ?G, QD
     Route: 058
     Dates: start: 20190809, end: 20190811
  15. OMEPRAZOLE. [Concomitant]
     Active Substance: OMEPRAZOLE
     Indication: CHRONIC GASTRITIS
     Dosage: 40 MG, QD
     Route: 042
     Dates: start: 20190423, end: 20190425
  16. PARACETAMOL [Concomitant]
     Active Substance: ACETAMINOPHEN
     Indication: PREMEDICATION
     Dosage: 1 G, ONCE
     Route: 048
     Dates: start: 20190711, end: 20190711
  17. CIPROFIBRATE [Concomitant]
     Active Substance: CIPROFIBRATE
     Indication: HYPERTRIGLYCERIDAEMIA
     Dosage: 100 MG, QD
     Route: 048
     Dates: start: 20190510
  18. COPANLISIB. [Suspect]
     Active Substance: COPANLISIB
     Indication: NON-HODGKIN^S LYMPHOMA RECURRENT
     Dosage: UNK
     Dates: end: 201905
  19. PARACETAMOL [Concomitant]
     Active Substance: ACETAMINOPHEN
     Indication: PREMEDICATION
     Dosage: 1 G, ONCE
     Route: 042
     Dates: start: 20190411, end: 20190411
  20. FILGRASTIM [Concomitant]
     Active Substance: FILGRASTIM
     Indication: NEUTROPENIA
     Dosage: 300 MCG/24HR
     Route: 058
     Dates: start: 20190719, end: 20190723

REACTIONS (20)
  - Hypokalaemia [Recovered/Resolved]
  - Hypokalaemia [Recovered/Resolved]
  - Hypokalaemia [Recovered/Resolved]
  - Hypokalaemia [Recovered/Resolved]
  - Hypokalaemia [None]
  - Hypokalaemia [Recovered/Resolved]
  - Hypokalaemia [Recovered/Resolved]
  - Hypokalaemia [None]
  - Haemorrhoids [Recovering/Resolving]
  - Hypokalaemia [Recovered/Resolved]
  - Cytomegalovirus infection [None]
  - Hypoalbuminaemia [None]
  - Hypokalaemia [Recovered/Resolved]
  - Hypokalaemia [None]
  - Hypocalcaemia [Recovered/Resolved]
  - Cytomegalovirus infection [Recovered/Resolved]
  - Hypokalaemia [None]
  - Diarrhoea [Recovered/Resolved]
  - Neutropenia [Recovered/Resolved]
  - Hypokalaemia [Recovered/Resolved]

NARRATIVE: CASE EVENT DATE: 20190423
